FAERS Safety Report 6817678-5 (Version None)
Quarter: 2010Q3

REPORT INFORMATION
  Report Type: 
  Country: None (occurrence: None)
  Receive Date: 20100706
  Receipt Date: 20100624
  Transmission Date: 20110219
  Serious: Yes (Hospitalization, Other)
  Sender: FDA-Public Use
  Company Number: CH-PFIZER INC-2006143119

PATIENT
  Age: 66 Year
  Sex: Male
  Weight: 68 kg

DRUGS (5)
  1. SUNITINIB MALATE [Suspect]
     Indication: GASTROINTESTINAL STROMAL TUMOUR
     Dosage: 37.5 MG, 1X/DAY (4 WEEKS/2 WEEKS PAUSE)
     Route: 048
     Dates: start: 20051222
  2. INDAPAMIDE [Concomitant]
     Indication: HYPERTENSION
     Route: 048
     Dates: start: 20040101, end: 20061105
  3. PANTOZOL [Concomitant]
     Route: 048
     Dates: start: 20040101
  4. APROVEL [Concomitant]
     Indication: HYPERTENSION
     Route: 048
     Dates: start: 20060401
  5. TAVEGYL [Concomitant]
     Route: 048
     Dates: start: 20060315

REACTIONS (2)
  - CARDIAC FAILURE [None]
  - HEPATOTOXICITY [None]
